FAERS Safety Report 23656716 (Version 1)
Quarter: 2024Q1

REPORT INFORMATION
  Report Type: Spontaneous
  Country: RU (occurrence: None)
  Receive Date: 20240321
  Receipt Date: 20240321
  Transmission Date: 20240410
  Serious: Yes (Other)
  Sender: FDA-Public Use
  Company Number: RU-ROCHE-3525782

PATIENT
  Age: 38 Year
  Sex: Female

DRUGS (5)
  1. TRASTUZUMAB [Suspect]
     Active Substance: TRASTUZUMAB
     Indication: Breast cancer metastatic
     Dosage: ON 05/APR/2021, NOV/2021, AUG/2022, 21/DEC/2023, 22/FEB/2024, SHE RECEIVED 4 CYCLES OF NACT IN THE A
     Route: 065
  2. PERTUZUMAB [Suspect]
     Active Substance: PERTUZUMAB
     Indication: Breast cancer metastatic
     Dosage: ON 05/APR/2021, NOV/2021, AUG/2022, 21/DEC/2023, 22/FEB/2024, SHE RECEIVED 4 CYCLES OF NACT IN THE A
     Route: 042
  3. ADO-TRASTUZUMAB EMTANSINE [Suspect]
     Active Substance: ADO-TRASTUZUMAB EMTANSINE
     Indication: Breast cancer metastatic
     Dosage: ON 12/SEP/2022, 06/OCT/2022, 21/DEC/2023, 22/FEB/2024, SHE RECEIVED TRASTUZUMAB EMTANSINE.
     Route: 042
  4. ZOLEDRONIC ACID [Suspect]
     Active Substance: ZOLEDRONIC ACID
     Indication: Breast cancer metastatic
     Dosage: ON 12/SEP/2022, 06/OCT/2022, SHE RECEIVED ZOLEDRONIC ACID.
     Route: 065
  5. DOCETAXEL [Suspect]
     Active Substance: DOCETAXEL\DOCETAXEL ANHYDROUS
     Indication: Breast cancer metastatic
     Dosage: ON 05/APR/2021, NOV/2021, 21/DEC/2023, 22/FEB/2024, SHE RECEIVED 4 CYCLES OF NACT IN THE AS REGIMEN
     Route: 065

REACTIONS (5)
  - Metastases to bone [Unknown]
  - Metastases to central nervous system [Unknown]
  - Thrombocytopenia [Unknown]
  - Hepatotoxicity [Unknown]
  - Disease progression [Unknown]

NARRATIVE: CASE EVENT DATE: 20210401
